FAERS Safety Report 9963697 (Version 1)
Quarter: 2014Q1

REPORT INFORMATION
  Report Type: Report from Study
  Country: US (occurrence: US)
  Receive Date: 20140305
  Receipt Date: 20140305
  Transmission Date: 20141002
  Serious: No
  Sender: FDA-Public Use
  Company Number: US-ABBVIE-13P-163-1117362-00

PATIENT
  Age: 25 Year
  Sex: Male

DRUGS (7)
  1. HUMIRA [Suspect]
     Indication: CROHN^S DISEASE
     Route: 058
     Dates: start: 2009
  2. EFFEXOR [Concomitant]
     Indication: DEPRESSION
     Route: 048
  3. ZANTAC [Concomitant]
     Indication: GASTRIC DISORDER
     Dosage: 150 MG DAILY
  4. LOVAZA [Concomitant]
     Indication: BLOOD CHOLESTEROL
  5. ALLEGRA [Concomitant]
     Indication: HYPERSENSITIVITY
     Dosage: DAILY
     Route: 048
  6. CALCIUM [Concomitant]
     Indication: MINERAL SUPPLEMENTATION
     Dosage: CHEWABLES
  7. RITALIN SR [Concomitant]
     Indication: ATTENTION DEFICIT/HYPERACTIVITY DISORDER
     Dosage: 20MG IN AM AND 10MG IN PM

REACTIONS (1)
  - Nephrolithiasis [Recovering/Resolving]
